FAERS Safety Report 6465819-4 (Version None)
Quarter: 2009Q4

REPORT INFORMATION
  Report Type: 
  Country: None (occurrence: None)
  Receive Date: 20091124
  Receipt Date: 20091118
  Transmission Date: 20100525
  Serious: Yes (Death)
  Sender: FDA-Public Use
  Company Number: 2009JP006397

PATIENT
  Age: 12 Year
  Sex: Male
  Weight: 29 kg

DRUGS (9)
  1. PROGRAF [Suspect]
     Indication: BONE MARROW TRANSPLANT
     Dosage: IV NOS
     Route: 042
     Dates: start: 20080222
  2. PROGRAF [Suspect]
     Indication: BONE MARROW TRANSPLANT
     Dosage: ORAL
     Route: 048
  3. METHOTREXATE [Suspect]
     Indication: BONE MARROW TRANSPLANT
     Dosage: IV NOS
     Route: 042
     Dates: start: 20080222
  4. CELLCEPT [Suspect]
     Indication: BONE MARROW TRANSPLANT
     Dosage: ORAL
     Route: 048
     Dates: start: 20080222
  5. FLUDARABINE (FLUDARABINE) FORMULATION UNKNOWN [Suspect]
     Indication: BONE MARROW CONDITIONING REGIMEN
     Dosage: 25 MG/M2, /D
  6. CYCLOPHOSPHAMIDE [Suspect]
     Indication: BONE MARROW CONDITIONING REGIMEN
     Dosage: 10 MG/KG, /D
  7. ANTI-THYMOCYTE GLOBULIN NOS [Suspect]
     Indication: BONE MARROW CONDITIONING REGIMEN
     Dosage: 1.25 MG/KG, /D
  8. PREDNISOLONE [Concomitant]
  9. ANABOLIC STEROIDS [Concomitant]

REACTIONS (6)
  - CARDIO-RESPIRATORY ARREST [None]
  - COUGH [None]
  - GENERAL PHYSICAL HEALTH DETERIORATION [None]
  - LYMPHOMA [None]
  - NO THERAPEUTIC RESPONSE [None]
  - PYREXIA [None]
